FAERS Safety Report 21640462 (Version 1)
Quarter: 2022Q4

REPORT INFORMATION
  Report Type: Report from Study
  Country: US (occurrence: US)
  Receive Date: 20221124
  Receipt Date: 20221124
  Transmission Date: 20230112
  Serious: No
  Sender: FDA-Public Use
  Company Number: US-ACADIA PHARMACEUTICALS INC.-ACA-2022-PIM-003768

PATIENT
  Sex: Male

DRUGS (7)
  1. NUPLAZID [Suspect]
     Active Substance: PIMAVANSERIN TARTRATE
     Indication: Parkinson^s disease
     Dosage: 34 MILLIGRAM, QD
     Route: 048
     Dates: start: 202202, end: 2022
  2. MORPHINE [Concomitant]
     Active Substance: MORPHINE
  3. CARBIDOPA [Concomitant]
     Active Substance: CARBIDOPA
  4. AMANTADINE [Concomitant]
     Active Substance: AMANTADINE
  5. RASAGILINE [Concomitant]
     Active Substance: RASAGILINE
  6. MELATONIN [Concomitant]
     Active Substance: MELATONIN
  7. QUETIAPINE [Concomitant]
     Active Substance: QUETIAPINE

REACTIONS (4)
  - Product dose omission issue [Unknown]
  - Delusion [Unknown]
  - Paranoia [Unknown]
  - Hallucination [Unknown]
